FAERS Safety Report 5662351-2 (Version None)
Quarter: 2008Q1

REPORT INFORMATION
  Report Type: 
  Country: None (occurrence: None)
  Receive Date: 20080312
  Receipt Date: 20080226
  Transmission Date: 20080703
  Serious: Yes (Disabling)
  Sender: FDA-Public Use
  Company Number: JP-PFIZER INC-2008019004

PATIENT
  Age: 74 Year
  Sex: Male

DRUGS (3)
  1. CAMPTO [Suspect]
     Indication: GASTRIC CANCER
     Dosage: DAILY DOSE:25MG/M2
     Dates: start: 20040630, end: 20040714
  2. TEGAFUR/GIMERACIL/OTERACIL POTASSIUM [Suspect]
     Indication: GASTRIC CANCER
     Dosage: DAILY DOSE:60MG/M2
     Route: 048
  3. CISPLATIN [Concomitant]
     Dosage: DAILY DOSE:15MG/M2
     Dates: start: 20040630, end: 20040714

REACTIONS (1)
  - GASTRIC PERFORATION [None]
